FAERS Safety Report 11757649 (Version 4)
Quarter: 2016Q2

REPORT INFORMATION
  Report Type: Report from Study
  Country: RU (occurrence: RU)
  Receive Date: 20151120
  Receipt Date: 20160408
  Transmission Date: 20160815
  Serious: Yes (Hospitalization)
  Sender: FDA-Public Use
  Company Number: RU-ROCHE-1663775

PATIENT
  Age: 55 Year
  Sex: Female
  Weight: 69 kg

DRUGS (8)
  1. CHOPHYTOL [Concomitant]
     Route: 065
     Dates: start: 20151105, end: 20151120
  2. CISPLATIN. [Suspect]
     Active Substance: CISPLATIN
     Indication: ADENOCARCINOMA GASTRIC
     Dosage: LAST DOSE OF CISPLATIN PRIOR TO NEUTROPENIA: 02/OCT/2015?LAST DOSE OF CISPLATIN PRIOR TO NEPHROPATHY
     Route: 042
     Dates: start: 20150925, end: 20151106
  3. OMEPRAZOLE. [Concomitant]
     Active Substance: OMEPRAZOLE
     Route: 065
     Dates: start: 20151006, end: 20151027
  4. FERRUM LEK (RUSSIA) [Concomitant]
  5. ONDANSETRON [Concomitant]
     Active Substance: ONDANSETRON
     Route: 065
     Dates: start: 20150925
  6. CAPECITABINE. [Suspect]
     Active Substance: CAPECITABINE
     Indication: ADENOCARCINOMA GASTRIC
     Dosage: LAST DOSE OF CAPECITABINE PRIOR TO NEUTROPENIA: 02/OCT/2015?LAST DOSE OF CAPECITABINE PRIOR TO NEPHR
     Route: 048
     Dates: start: 20150925, end: 20151106
  7. CONCOR [Concomitant]
     Active Substance: BISOPROLOL FUMARATE
     Route: 065
     Dates: start: 2008
  8. DEXAMETHASONE. [Concomitant]
     Active Substance: DEXAMETHASONE
     Route: 065
     Dates: start: 20150925

REACTIONS (2)
  - Nephropathy [Recovered/Resolved]
  - Neutropenia [Recovered/Resolved]

NARRATIVE: CASE EVENT DATE: 20151105
